FAERS Safety Report 22048614 (Version 1)
Quarter: 2023Q1

REPORT INFORMATION
  Report Type: Report from Study
  Country: US (occurrence: US)
  Receive Date: 20230301
  Receipt Date: 20230301
  Transmission Date: 20230418
  Serious: Yes (Hospitalization)
  Sender: FDA-Public Use
  Company Number: US-ABBVIE-4321038

PATIENT
  Age: 27 Year
  Sex: Female

DRUGS (1)
  1. RINVOQ [Suspect]
     Active Substance: UPADACITINIB
     Indication: Rheumatoid arthritis
     Route: 048
     Dates: start: 20230205

REACTIONS (5)
  - Vomiting [Recovering/Resolving]
  - White blood cell count increased [Recovering/Resolving]
  - Nausea [Recovering/Resolving]
  - Pyrexia [Recovering/Resolving]
  - Aspiration [Unknown]

NARRATIVE: CASE EVENT DATE: 20230222
